FAERS Safety Report 24581651 (Version 2)
Quarter: 2024Q4

REPORT INFORMATION
  Report Type: Spontaneous
  Country: US (occurrence: US)
  Receive Date: 20241105
  Receipt Date: 20241111
  Transmission Date: 20250115
  Serious: Yes (Other)
  Sender: PFIZER
  Company Number: US-MLMSERVICE-20241025-PI237309-00312-2

PATIENT
  Age: 33 Year
  Sex: Female

DRUGS (1)
  1. TESTOSTERONE CYPIONATE [Suspect]
     Active Substance: TESTOSTERONE CYPIONATE
     Indication: Transgender hormonal therapy
     Dosage: 100 MG, EVERY TWO WEEKS
     Route: 030
     Dates: end: 2023

REACTIONS (5)
  - Ovarian cancer recurrent [Recovered/Resolved]
  - PD-L1 positive cancer [Recovered/Resolved]
  - Metastases to lymph nodes [Recovered/Resolved]
  - Metastases to vagina [Recovered/Resolved]
  - Off label use [Unknown]

NARRATIVE: CASE EVENT DATE: 20220101
